FAERS Safety Report 15612428 (Version 1)
Quarter: 2018Q4

REPORT INFORMATION
  Report Type: Spontaneous
  Country: US (occurrence: US)
  Receive Date: 20181113
  Receipt Date: 20181113
  Transmission Date: 20190205
  Serious: No
  Sender: FDA-Public Use
  Company Number: US-APOTEX-2018AP012368

PATIENT
  Sex: Female

DRUGS (1)
  1. SOTALOL HYDROCHLORIDE. [Suspect]
     Active Substance: SOTALOL HYDROCHLORIDE
     Indication: PRODUCT USED FOR UNKNOWN INDICATION
     Dosage: UNK
     Route: 065

REACTIONS (7)
  - Dysstasia [Recovered/Resolved]
  - Chest discomfort [Recovering/Resolving]
  - Joint swelling [Recovering/Resolving]
  - Gait disturbance [Recovering/Resolving]
  - Peripheral swelling [Recovering/Resolving]
  - Product substitution issue [Unknown]
  - Product size issue [Unknown]
